FAERS Safety Report 7507190-2 (Version None)
Quarter: 2011Q2

REPORT INFORMATION
  Report Type: 
  Country: None (occurrence: None)
  Receive Date: 20110526
  Receipt Date: 20110516
  Transmission Date: 20111010
  Serious: Yes (Hospitalization)
  Sender: FDA-Public Use
  Company Number: ES-ELI_LILLY_AND_COMPANY-ES201105004538

PATIENT
  Sex: Female

DRUGS (7)
  1. ACETAMINOPHEN [Concomitant]
     Indication: ANALGESIC THERAPY
     Dosage: 1 G, EVERY 8 HRS
     Route: 048
  2. FORTEO [Suspect]
     Indication: OSTEOPOROSIS
     Dosage: 20 UG, QD
     Route: 058
     Dates: start: 20110309
  3. ASPIRIN [Concomitant]
     Indication: PERIPHERAL VASCULAR DISORDER
     Dosage: 100 MG, QD
     Route: 048
  4. CALCIUM CARBONATE [Concomitant]
     Indication: BONE DISORDER
     Dosage: 1 DF, QD
     Route: 048
  5. SINVASTATINA [Concomitant]
     Dosage: 1 DF, QD
     Route: 048
  6. ALPRAZOLAM [Concomitant]
     Indication: SLEEP DISORDER
     Dosage: 1 DF, QD
     Route: 048
  7. MINITRANS [Concomitant]
     Dosage: 10 MG, FOR 12 HOURS A DAY
     Route: 062

REACTIONS (2)
  - ANAEMIA [None]
  - RESPIRATORY FAILURE [None]
